FAERS Safety Report 18192122 (Version 1)
Quarter: 2020Q3

REPORT INFORMATION
  Report Type: Spontaneous
  Country: US (occurrence: US)
  Receive Date: 20200825
  Receipt Date: 20200825
  Transmission Date: 20201103
  Serious: Yes (Death)
  Sender: FDA-Public Use
  Company Number: None

PATIENT
  Age: 74 Year
  Sex: Female

DRUGS (1)
  1. ARANESP [Suspect]
     Active Substance: DARBEPOETIN ALFA
     Dosage: ?          OTHER STRENGTH:100/0.5 UG/ML;?
     Route: 058
     Dates: start: 202003

REACTIONS (1)
  - Death [None]

NARRATIVE: CASE EVENT DATE: 20200821
